FAERS Safety Report 20841548 (Version 1)
Quarter: 2022Q2

REPORT INFORMATION
  Report Type: Report from Study
  Country: GB (occurrence: GB)
  Receive Date: 20220518
  Receipt Date: 20220518
  Transmission Date: 20220721
  Serious: Yes (Death, Other)
  Sender: FDA-Public Use
  Company Number: GB-AMGEN-GBRNI2022081709

PATIENT
  Age: 66 Year
  Sex: Male

DRUGS (2)
  1. AMG-510 [Suspect]
     Active Substance: AMG-510
     Indication: Lung adenocarcinoma
     Dosage: UNK
     Route: 065
     Dates: start: 202111
  2. AMG-510 [Suspect]
     Active Substance: AMG-510
     Indication: K-ras gene mutation

REACTIONS (1)
  - Lung adenocarcinoma [Fatal]

NARRATIVE: CASE EVENT DATE: 20220301
